FAERS Safety Report 9107374 (Version 6)
Quarter: 2013Q3

REPORT INFORMATION
  Report Type: Spontaneous
  Country: US (occurrence: US)
  Receive Date: 20130221
  Receipt Date: 20130730
  Transmission Date: 20140515
  Serious: Yes (Hospitalization, Other)
  Sender: FDA-Public Use
  Company Number: US-009507513-1302USA009133

PATIENT
  Sex: Female
  Weight: 71.2 kg

DRUGS (5)
  1. FOSAMAX [Suspect]
     Indication: OSTEOPOROSIS
     Dosage: 10 MG, QD
     Route: 048
     Dates: start: 200101, end: 200110
  2. FOSAMAX [Suspect]
     Dosage: 70 MG, QW
     Route: 048
     Dates: start: 200110, end: 200606
  3. FOSAMAX PLUS D [Suspect]
     Indication: OSTEOPOROSIS
     Dosage: 70 MG/2800 QW
     Route: 048
     Dates: start: 200606, end: 201001
  4. CENTRUM SILVER [Concomitant]
     Dosage: 1 DF, QD
     Dates: start: 2000
  5. HORMONES (UNSPECIFIED) [Concomitant]
     Dosage: UNK
     Dates: start: 1990

REACTIONS (31)
  - Hip arthroplasty [Unknown]
  - Cholecystectomy [Unknown]
  - Femur fracture [Unknown]
  - Vitamin D deficiency [Unknown]
  - Hypertension [Unknown]
  - Hyperlipidaemia [Unknown]
  - Infection [Unknown]
  - Urinary tract infection [Unknown]
  - Pain [Unknown]
  - Eye disorder [Unknown]
  - Deep vein thrombosis [Unknown]
  - Osteoarthritis [Unknown]
  - Joint crepitation [Unknown]
  - Osteoarthritis [Unknown]
  - Calcium deficiency [Unknown]
  - Bladder repair [Unknown]
  - Appendicectomy [Unknown]
  - Hysterectomy [Unknown]
  - Knee arthroplasty [Unknown]
  - Balance disorder [Not Recovered/Not Resolved]
  - Orthosis user [Unknown]
  - Joint crepitation [Unknown]
  - Rotator cuff syndrome [Unknown]
  - Osteoarthritis [Unknown]
  - Osteoarthritis [Unknown]
  - Fall [Unknown]
  - Pain in extremity [Recovering/Resolving]
  - Arthralgia [Not Recovered/Not Resolved]
  - Thrombocytopenia [Unknown]
  - Lumbar spinal stenosis [Recovering/Resolving]
  - Intervertebral disc degeneration [Recovering/Resolving]
